FAERS Safety Report 18601949 (Version 3)
Quarter: 2022Q1

REPORT INFORMATION
  Report Type: Spontaneous
  Country: US (occurrence: US)
  Receive Date: 20201210
  Receipt Date: 20220112
  Transmission Date: 20220423
  Serious: Yes (Hospitalization, Other)
  Sender: FDA-Public Use
  Company Number: US-PFIZER INC-2019490145

PATIENT
  Age: 57 Year
  Sex: Female
  Weight: 86.168 kg

DRUGS (1)
  1. LYRICA [Suspect]
     Active Substance: PREGABALIN
     Indication: Nerve injury
     Dosage: 200 MG, 3X/DAY
     Route: 048
     Dates: start: 2016

REACTIONS (2)
  - Sepsis [Not Recovered/Not Resolved]
  - Immune system disorder [Unknown]
